FAERS Safety Report 12842671 (Version 7)
Quarter: 2018Q1

REPORT INFORMATION
  Report Type: Spontaneous
  Country: US (occurrence: US)
  Receive Date: 20161013
  Receipt Date: 20180115
  Transmission Date: 20180508
  Serious: Yes (Congenital Anomaly, Other)
  Sender: FDA-Public Use
  Company Number: PHEH2016US026350

PATIENT
  Sex: Female

DRUGS (2)
  1. ZOFRAN [Suspect]
     Active Substance: ONDANSETRON HYDROCHLORIDE
     Indication: FOETAL EXPOSURE DURING PREGNANCY
     Dosage: MOTHER DOSE: 8 MG, BID
     Route: 064
  2. ONDANSETRON. [Suspect]
     Active Substance: ONDANSETRON
     Indication: FOETAL EXPOSURE DURING PREGNANCY
     Dosage: MOTHER DOSE: 08 MG, BID
     Route: 064

REACTIONS (25)
  - Foetal exposure during pregnancy [Unknown]
  - Bronchial hyperreactivity [Unknown]
  - Laevocardia [Unknown]
  - Right-to-left cardiac shunt [Unknown]
  - Neonatal respiratory distress [Not Recovered/Not Resolved]
  - Cardiomegaly [Unknown]
  - Tachypnoea [Unknown]
  - Nasal congestion [Unknown]
  - Pyrexia [Unknown]
  - Sepsis neonatal [Unknown]
  - Bronchiolitis [Unknown]
  - Left ventricular hypertrophy [Unknown]
  - Congenital heart valve disorder [Unknown]
  - Pulmonary hypoplasia [Unknown]
  - Patent ductus arteriosus [Unknown]
  - Left-to-right cardiac shunt [Unknown]
  - Ventricular hypoplasia [Unknown]
  - Heart disease congenital [Unknown]
  - Atelectasis neonatal [Recovering/Resolving]
  - Pericardial effusion [Unknown]
  - Neonatal hypoxia [Unknown]
  - Dyspnoea [Unknown]
  - Cough [Unknown]
  - Atrial septal defect [Unknown]
  - Cardiomyopathy [Unknown]
